FAERS Safety Report 6994152-7 (Version None)
Quarter: 2010Q3

REPORT INFORMATION
  Report Type: 
  Country: None (occurrence: None)
  Receive Date: 20100917
  Receipt Date: 20100121
  Transmission Date: 20110219
  Serious: No
  Sender: FDA-Public Use
  Company Number: US-ASTRAZENECA-2010SE02961

PATIENT
  Age: 53 Year
  Sex: Male

DRUGS (5)
  1. SEROQUEL XR [Suspect]
     Indication: BIPOLAR DISORDER
     Route: 048
     Dates: start: 20040101
  2. SEROQUEL XR [Suspect]
     Route: 048
  3. XANAX [Concomitant]
  4. DEPAKOTE [Concomitant]
  5. TWO BLOOD PRESSURE MEDICATIONS [Concomitant]

REACTIONS (5)
  - AGITATION [None]
  - ANXIETY [None]
  - CORONARY ARTERIAL STENT INSERTION [None]
  - DRUG DOSE OMISSION [None]
  - MUSCLE TIGHTNESS [None]
